FAERS Safety Report 9714037 (Version 1)
Quarter: 2013Q4

REPORT INFORMATION
  Report Type: Spontaneous
  Country: US (occurrence: US)
  Receive Date: 20131126
  Receipt Date: 20131126
  Transmission Date: 20140711
  Serious: No
  Sender: FDA-Public Use
  Company Number: US-GILEAD-2008-0018677

PATIENT
  Sex: Female
  Weight: 54.43 kg

DRUGS (17)
  1. LETAIRIS [Suspect]
     Indication: COR PULMONALE CHRONIC
     Route: 048
     Dates: start: 20080503
  2. REVATIO [Concomitant]
  3. REMODULIN [Concomitant]
  4. FLOVENT [Concomitant]
  5. ATROVENT [Concomitant]
  6. ALBUTEROL [Concomitant]
  7. HEPARIN [Concomitant]
  8. SODIUM CHLORIDE [Concomitant]
  9. PREDNISONE [Concomitant]
  10. SEREVENT [Concomitant]
  11. NORVASC [Concomitant]
  12. PRILOSEC [Concomitant]
  13. SYNTHROID [Concomitant]
  14. CYTOMEL [Concomitant]
  15. FOSAMAX [Concomitant]
  16. VICODIN [Concomitant]
  17. IMODIUM AD [Concomitant]

REACTIONS (1)
  - Insomnia [Unknown]
